FAERS Safety Report 8147001-8 (Version None)
Quarter: 2012Q1

REPORT INFORMATION
  Report Type: 
  Country: None (occurrence: None)
  Receive Date: 20120217
  Receipt Date: 20120206
  Transmission Date: 20120608
  Serious: Yes (Hospitalization)
  Sender: FDA-Public Use
  Company Number: CA-ASTRAZENECA-2012SE08993

PATIENT
  Age: 48 Year
  Sex: Male

DRUGS (5)
  1. LIPITOR [Concomitant]
  2. MONOCOR [Concomitant]
  3. PERINDOPRIL ERBUMINE [Concomitant]
  4. ASPIRIN [Concomitant]
  5. BRILINTA [Suspect]
     Route: 048

REACTIONS (4)
  - DRUG HYPERSENSITIVITY [None]
  - PAIN IN EXTREMITY [None]
  - SERUM SICKNESS [None]
  - OEDEMA PERIPHERAL [None]
